FAERS Safety Report 9222664 (Version 4)
Quarter: 2013Q2

REPORT INFORMATION
  Report Type: Spontaneous
  Country: NO (occurrence: NO)
  Receive Date: 20130410
  Receipt Date: 20130607
  Transmission Date: 20140414
  Serious: Yes (Life-Threatening, Hospitalization, Other)
  Sender: FDA-Public Use
  Company Number: NO-PFIZER INC-2013113839

PATIENT
  Age: 58 Year
  Sex: Male

DRUGS (16)
  1. LYRICA [Suspect]
     Indication: HEADACHE
     Dosage: 300 MG, 2X/DAY
     Route: 048
     Dates: start: 2011, end: 20130404
  2. LYRICA [Suspect]
     Indication: PAIN
  3. LYRICA [Suspect]
     Indication: POST-TRAUMATIC HEADACHE
  4. IBUX [Suspect]
     Indication: HEADACHE
     Dosage: 600 MG, 4X/DAY
     Dates: end: 20130404
  5. IBUX [Suspect]
     Indication: POST-TRAUMATIC HEADACHE
  6. PARACETAMOL [Suspect]
     Indication: POST-TRAUMATIC HEADACHE
     Dosage: 1 G, 4X/DAY
     Dates: end: 20130404
  7. PARACETAMOL [Suspect]
     Indication: HEADACHE
  8. TARGINIQ [Concomitant]
     Indication: HEADACHE
     Dosage: 40 MG, 2X/DAY
     Dates: start: 201201
  9. TARGINIQ [Concomitant]
     Indication: POST-TRAUMATIC HEADACHE
  10. SIMVASTATIN [Concomitant]
     Dosage: 40 MG/DAY
     Dates: end: 201304
  11. MOVICOL [Concomitant]
     Dosage: USED ^THE LAST COUPLE OF DAYS^ PRIOR TO HOSPITALIZATION
  12. NEXIUM [Concomitant]
     Dosage: 40 MG/DAY
     Dates: end: 201304
  13. METFORMIN [Concomitant]
     Dosage: 500 MG/DAY
     Dates: end: 201304
  14. FURIX [Concomitant]
     Dosage: 20 MG/DAY
     Dates: end: 201304
  15. SAROTEX [Concomitant]
     Indication: POST-TRAUMATIC HEADACHE
     Dosage: 50 MG, AS NEEDED
  16. LAXOBERAL [Concomitant]
     Dosage: 10 DROPS EVENING
     Route: 048

REACTIONS (3)
  - Renal failure acute [Recovering/Resolving]
  - Biopsy kidney abnormal [Recovering/Resolving]
  - Off label use [Unknown]
